FAERS Safety Report 5430312-4 (Version None)
Quarter: 2007Q3

REPORT INFORMATION
  Report Type: 
  Country: None (occurrence: None)
  Receive Date: 20070830
  Receipt Date: 20070827
  Transmission Date: 20080115
  Serious: Yes (Death, Hospitalization)
  Sender: FDA-Public Use
  Company Number: PHBS2007CN08146

PATIENT
  Age: 39 Year
  Sex: Male

DRUGS (2)
  1. SEBIVO [Suspect]
     Indication: HEPATITIS B
     Dosage: 600 MG, QD
     Route: 048
     Dates: start: 20070403
  2. TRADITIONAL CHINESE MEDICINE [Concomitant]
     Indication: GASTRITIS

REACTIONS (2)
  - BRADYCARDIA [None]
  - ROAD TRAFFIC ACCIDENT [None]
